FAERS Safety Report 11963850 (Version 1)
Quarter: 2016Q1

REPORT INFORMATION
  Report Type: Spontaneous
  Country: US (occurrence: US)
  Receive Date: 20160126
  Receipt Date: 20160126
  Transmission Date: 20160526
  Serious: Yes (Hospitalization, Other)
  Sender: FDA-Public Use
  Company Number: US-AMGEN-USASP2016006775

PATIENT
  Age: 79 Year
  Sex: Female

DRUGS (2)
  1. IMLYGIC [Suspect]
     Active Substance: TALIMOGENE LAHERPAREPVEC
     Indication: MALIGNANT MELANOMA
     Dosage: UNK (10 TO THE 6TH STRENGTH)
     Route: 065
     Dates: start: 20151230
  2. IMLYGIC [Suspect]
     Active Substance: TALIMOGENE LAHERPAREPVEC
     Dosage: UNK (10 TO THE 8TH STRENGTH)
     Route: 065
     Dates: start: 201601

REACTIONS (3)
  - Platelet count decreased [Unknown]
  - Gastrointestinal haemorrhage [Unknown]
  - Tumour haemorrhage [Unknown]
